FAERS Safety Report 10019201 (Version 1)
Quarter: 2014Q1

REPORT INFORMATION
  Report Type: Spontaneous
  Country: GB (occurrence: GB)
  Receive Date: 20140318
  Receipt Date: 20140318
  Transmission Date: 20141002
  Serious: Yes (Death, Other)
  Sender: FDA-Public Use
  Company Number: GB-TEVA-468657ISR

PATIENT
  Age: 67 Year
  Sex: 0

DRUGS (1)
  1. CO-AMOXICLAV [Suspect]

REACTIONS (3)
  - Anaphylactic reaction [Fatal]
  - Circulatory collapse [Not Recovered/Not Resolved]
  - Cardiac arrest [Not Recovered/Not Resolved]
